FAERS Safety Report 25516076 (Version 1)
Quarter: 2025Q3

REPORT INFORMATION
  Report Type: Spontaneous
  Country: US (occurrence: US)
  Receive Date: 20250704
  Receipt Date: 20250704
  Transmission Date: 20251020
  Serious: Yes (Other)
  Sender: NOVO NORDISK
  Company Number: US-NOVOPROD-1471340

PATIENT
  Sex: Female

DRUGS (1)
  1. WEGOVY [Suspect]
     Active Substance: SEMAGLUTIDE
     Indication: Product used for unknown indication
     Dates: start: 2024

REACTIONS (4)
  - Osteonecrosis [Unknown]
  - Fall [Unknown]
  - Depression [Unknown]
  - Weight abnormal [Unknown]
